FAERS Safety Report 9247479 (Version 2)
Quarter: 2013Q2

REPORT INFORMATION
  Report Type: Spontaneous
  Country: JP (occurrence: JP)
  Receive Date: 20130423
  Receipt Date: 20130430
  Transmission Date: 20140414
  Serious: Yes (Other)
  Sender: FDA-Public Use
  Company Number: JP-UCBSA-083830

PATIENT
  Sex: 0

DRUGS (3)
  1. E KEPPRA [Suspect]
     Dosage: UNKNOWN DOSE
     Route: 048
  2. DEPAKENE [Concomitant]
     Route: 048
  3. BEZATOL SR [Concomitant]
     Dosage: UNKNOWN DOSE
     Route: 048

REACTIONS (3)
  - Bradycardia [Unknown]
  - Blood pressure decreased [Unknown]
  - Overdose [Unknown]
